FAERS Safety Report 22040451 (Version 1)
Quarter: 2023Q1

REPORT INFORMATION
  Report Type: Spontaneous
  Country: RU (occurrence: RU)
  Receive Date: 20230227
  Receipt Date: 20230227
  Transmission Date: 20230418
  Serious: Yes (Life-Threatening, Hospitalization, Other)
  Sender: FDA-Public Use
  Company Number: RU-BRISTOL-MYERS SQUIBB COMPANY-2023-026626

PATIENT
  Age: 39 Year
  Sex: Male

DRUGS (1)
  1. NIVOLUMAB [Suspect]
     Active Substance: NIVOLUMAB
     Indication: Lung cancer metastatic
     Route: 042

REACTIONS (3)
  - Immune-mediated adrenal insufficiency [Unknown]
  - Type 1 diabetes mellitus [Unknown]
  - Immune-mediated hypothyroidism [Unknown]

NARRATIVE: CASE EVENT DATE: 20210401
